FAERS Safety Report 5373255-7 (Version None)
Quarter: 2007Q2

REPORT INFORMATION
  Report Type: 
  Country: None (occurrence: None)
  Receive Date: 20070628
  Receipt Date: 20070620
  Transmission Date: 20071010
  Serious: Yes (Other)
  Sender: FDA-Public Use
  Company Number: PHRM2007FR01726

PATIENT
  Sex: Female

DRUGS (2)
  1. ZOMETA [Suspect]
     Indication: METASTASES TO BONE
     Route: 042
  2. CHEMOTHERAPEUTICS NOS [Concomitant]
     Indication: METASTATIC MALIGNANT MELANOMA

REACTIONS (2)
  - ARTHRITIS [None]
  - BONE DENSITY INCREASED [None]
